FAERS Safety Report 6286308-6 (Version None)
Quarter: 2009Q3

REPORT INFORMATION
  Report Type: 
  Country: None (occurrence: None)
  Receive Date: 20090724
  Receipt Date: 20090217
  Transmission Date: 20100115
  Serious: Yes (Other)
  Sender: FDA-Public Use
  Company Number: 2009-1189

PATIENT
  Age: 10 Year
  Sex: Female
  Weight: 25.74 kg

DRUGS (1)
  1. INCRELEX [Suspect]
     Dosage: 217.552UG/KG (2800 ?G, 2 IN 1 D), SUBCUTANEOUS
     Route: 058
     Dates: start: 20070511, end: 20080927

REACTIONS (4)
  - BLOOD POTASSIUM DECREASED [None]
  - CONVULSION [None]
  - DYSKINESIA [None]
  - PAIN IN EXTREMITY [None]
